FAERS Safety Report 17639224 (Version 1)
Quarter: 2020Q2

REPORT INFORMATION
  Report Type: Spontaneous
  Country: US (occurrence: US)
  Receive Date: 20200407
  Receipt Date: 20200407
  Transmission Date: 20200713
  Serious: Yes (Life-Threatening, Other)
  Sender: FDA-Public Use
  Company Number: US-PFIZER INC-2020142304

PATIENT
  Age: 55 Year
  Sex: Male

DRUGS (1)
  1. AMIODARONE HCL [Suspect]
     Active Substance: AMIODARONE HYDROCHLORIDE
     Dosage: UNK
     Route: 041

REACTIONS (4)
  - Drug ineffective [Unknown]
  - Ventricular tachycardia [Recovering/Resolving]
  - Pulse absent [Recovering/Resolving]
  - Haemodynamic instability [Recovering/Resolving]
